FAERS Safety Report 23836960 (Version 1)
Quarter: 2024Q2

REPORT INFORMATION
  Report Type: Spontaneous
  Country: US (occurrence: None)
  Receive Date: 20240508
  Receipt Date: 20240508
  Transmission Date: 20240716
  Serious: Yes (Disabling)
  Sender: FDA-Public Use
  Company Number: None

PATIENT
  Age: 26 Year
  Sex: Female
  Weight: 58.5 kg

DRUGS (5)
  1. AUSTEDO XR [Suspect]
     Active Substance: DEUTETRABENAZINE
     Indication: Tardive dyskinesia
     Dosage: OTHER QUANTITY : 1 TABLET(S);?
     Route: 048
     Dates: start: 20230612, end: 20230828
  2. TRINTELLIX [Concomitant]
     Active Substance: VORTIOXETINE HYDROBROMIDE
  3. geodon [Concomitant]
  4. HALDOL [Concomitant]
     Active Substance: HALOPERIDOL
  5. METFORMIN [Concomitant]

REACTIONS (6)
  - Oculogyric crisis [None]
  - Speech disorder [None]
  - Drooling [None]
  - Lethargy [None]
  - Confusional state [None]
  - Dyskinesia [None]

NARRATIVE: CASE EVENT DATE: 20230828
